FAERS Safety Report 15161281 (Version 1)
Quarter: 2018Q3

REPORT INFORMATION
  Report Type: Report from Study
  Country: US (occurrence: US)
  Receive Date: 20180718
  Receipt Date: 20180718
  Transmission Date: 20181010
  Serious: No
  Sender: FDA-Public Use
  Company Number: US-AMGEN-USASP2011047910

PATIENT
  Age: 55 Year
  Sex: Female

DRUGS (1)
  1. ENBREL [Suspect]
     Active Substance: ETANERCEPT
     Indication: ANKYLOSING SPONDYLITIS
     Dosage: 50 MG, QWK
     Dates: start: 20110622

REACTIONS (5)
  - Injection site erythema [Not Recovered/Not Resolved]
  - Injection site swelling [Not Recovered/Not Resolved]
  - Anxiety [Not Recovered/Not Resolved]
  - Headache [Not Recovered/Not Resolved]
  - Injection site pruritus [Not Recovered/Not Resolved]

NARRATIVE: CASE EVENT DATE: 20110622
